FAERS Safety Report 18991178 (Version 1)
Quarter: 2021Q1

REPORT INFORMATION
  Report Type: Spontaneous
  Country: US (occurrence: US)
  Receive Date: 20210310
  Receipt Date: 20210310
  Transmission Date: 20210420
  Serious: Yes (Other)
  Sender: FDA-Public Use
  Company Number: US-SUNOVION-2021SUN000723

PATIENT
  Sex: Male

DRUGS (5)
  1. LATUDA [Suspect]
     Active Substance: LURASIDONE HYDROCHLORIDE
     Indication: BIPOLAR I DISORDER
     Dosage: 80 MG, QD
     Route: 048
  2. WELLBUTRIN [Concomitant]
     Active Substance: BUPROPION HYDROCHLORIDE
     Dosage: 300 MG, QD
     Route: 048
  3. HYDROXYZINE HCL [Concomitant]
     Active Substance: HYDROXYZINE HYDROCHLORIDE
     Indication: HYPERTENSION
     Dosage: 50 MG, QID
     Route: 048
  4. LISINOPRIL AND HYDROCHLOROTHIAZIDE [Concomitant]
     Active Substance: HYDROCHLOROTHIAZIDE\LISINOPRIL
     Indication: HYPERTENSION
     Dosage: UNK
  5. LATUDA [Suspect]
     Active Substance: LURASIDONE HYDROCHLORIDE
     Indication: DEPRESSION

REACTIONS (17)
  - Emotional distress [Unknown]
  - Paranoia [Unknown]
  - Negative thoughts [Unknown]
  - Agoraphobia [Unknown]
  - Nightmare [Unknown]
  - Obesity [Unknown]
  - Suicide attempt [Unknown]
  - Social anxiety disorder [Unknown]
  - Anxiety [Unknown]
  - Insomnia [Unknown]
  - Hallucination, auditory [Unknown]
  - Apathy [Unknown]
  - Tachyphrenia [Unknown]
  - Depression [Unknown]
  - Mood swings [Unknown]
  - Metabolic syndrome [Unknown]
  - Panic attack [Unknown]

NARRATIVE: CASE EVENT DATE: 2010
